FAERS Safety Report 16228673 (Version 1)
Quarter: 2019Q2

REPORT INFORMATION
  Report Type: Spontaneous
  Country: US (occurrence: US)
  Receive Date: 20190422
  Receipt Date: 20190422
  Transmission Date: 20190711
  Serious: Yes (Hospitalization)
  Sender: FDA-Public Use
  Company Number: None

PATIENT
  Sex: Female

DRUGS (7)
  1. BENZTROPINE. [Concomitant]
     Active Substance: BENZTROPINE
  2. INVEGA SUSTENNA [Suspect]
     Active Substance: PALIPERIDONE PALMITATE
     Dosage: ?          OTHER FREQUENCY:EVERY 28 DAYS;?
     Route: 030
  3. RISPERIDONE. [Concomitant]
     Active Substance: RISPERIDONE
  4. ARIPIPRAZOLE. [Concomitant]
     Active Substance: ARIPIPRAZOLE
  5. CLONAZEPAM. [Concomitant]
     Active Substance: CLONAZEPAM
  6. TRAZODONE [Concomitant]
     Active Substance: TRAZODONE HYDROCHLORIDE
  7. DIVALPROEX [Concomitant]
     Active Substance: DIVALPROEX SODIUM

REACTIONS (1)
  - Hospitalisation [None]
